FAERS Safety Report 9556314 (Version 1)
Quarter: 2013Q3

REPORT INFORMATION
  Report Type: Spontaneous
  Country: JP (occurrence: None)
  Receive Date: 20130924
  Receipt Date: 20130924
  Transmission Date: 20140515
  Serious: Yes (Hospitalization, Other)
  Sender: FDA-Public Use
  Company Number: CO-OR-JP-2013-088

PATIENT
  Age: 80 Year
  Sex: Female

DRUGS (1)
  1. PREDNISOLONE [Suspect]
     Indication: MICROSCOPIC POLYANGIITIS
     Route: 048
     Dates: start: 2009

REACTIONS (3)
  - Pulmonary tuberculosis [None]
  - Cutaneous tuberculosis [None]
  - Hepatic enzyme increased [None]
